FAERS Safety Report 6638879-5 (Version None)
Quarter: 2010Q1

REPORT INFORMATION
  Report Type: 
  Country: None (occurrence: None)
  Receive Date: 20100317
  Receipt Date: 20100308
  Transmission Date: 20100710
  Serious: Yes (Hospitalization)
  Sender: FDA-Public Use
  Company Number: GXKR2010SI02716

PATIENT
  Age: 4 Year
  Sex: Female

DRUGS (1)
  1. TRAMADOL (NGX) [Suspect]
     Route: 048

REACTIONS (20)
  - AGITATION [None]
  - BRADYPNOEA [None]
  - COMA [None]
  - CYANOSIS [None]
  - DRUG TOXICITY [None]
  - FEAR [None]
  - GRAND MAL CONVULSION [None]
  - HALLUCINATION [None]
  - HYPOVENTILATION [None]
  - MIOSIS [None]
  - OPISTHOTONUS [None]
  - OROPHARYNGEAL PAIN [None]
  - OXYGEN SATURATION DECREASED [None]
  - PYREXIA [None]
  - RESPIRATORY ACIDOSIS [None]
  - RESPIRATORY DEPRESSION [None]
  - RESPIRATORY DISORDER [None]
  - SOMNOLENCE [None]
  - TACHYCARDIA [None]
  - TREMOR [None]
